FAERS Safety Report 12185382 (Version 1)
Quarter: 2016Q1

REPORT INFORMATION
  Report Type: Spontaneous
  Country: KR (occurrence: KR)
  Receive Date: 20160316
  Receipt Date: 20160316
  Transmission Date: 20160526
  Serious: Yes (Hospitalization)
  Sender: FDA-Public Use
  Company Number: KR-MYLANLABS-2016M1011235

PATIENT

DRUGS (2)
  1. MESALAZINE [Suspect]
     Active Substance: MESALAMINE
     Indication: CROHN^S DISEASE
     Dosage: 3.0 G/DAY MAINTAINED FOR 5.6 YEARS
     Route: 065
  2. INFLIXIMAB [Suspect]
     Active Substance: INFLIXIMAB
     Indication: CROHN^S DISEASE
     Dosage: RECEIVED 19TH INFUSION ONE MONTH PRIOR TO ADMISSION; ADMINISTERED EVERY 2 MONTHS.
     Route: 050

REACTIONS (1)
  - Tubulointerstitial nephritis [Recovering/Resolving]
